FAERS Safety Report 7540639-8 (Version None)
Quarter: 2011Q2

REPORT INFORMATION
  Report Type: 
  Country: None (occurrence: None)
  Receive Date: 20110610
  Receipt Date: 20110308
  Transmission Date: 20111010
  Serious: Yes (Other)
  Sender: FDA-Public Use
  Company Number: PHHY2011US20921

PATIENT
  Age: 63 Year
  Sex: Male

DRUGS (6)
  1. METFORMIN HCL [Suspect]
     Dosage: UNK
     Dates: end: 20110101
  2. MULTI-VITAMINS [Concomitant]
     Dosage: UNK
  3. CYMBALTA [Suspect]
     Dosage: 60 MG, QD
     Route: 048
     Dates: end: 20110101
  4. ASCORBIC ACID [Concomitant]
  5. ENABLEX [Suspect]
     Dosage: 15 MG, QD
     Route: 048
     Dates: end: 20110201
  6. LIPITOR [Suspect]
     Dosage: 40 MG, QD
     Route: 048
     Dates: end: 20110101

REACTIONS (6)
  - WOUND SECRETION [None]
  - SKIN LESION [None]
  - SCAB [None]
  - JOINT SWELLING [None]
  - SKIN MACERATION [None]
  - OEDEMA PERIPHERAL [None]
